FAERS Safety Report 5701550-8 (Version None)
Quarter: 2008Q2

REPORT INFORMATION
  Report Type: 
  Country: None (occurrence: None)
  Receive Date: 20080408
  Receipt Date: 20080331
  Transmission Date: 20081010
  Serious: Yes (Other)
  Sender: FDA-Public Use
  Company Number: 2008007852

PATIENT
  Age: 68 Year
  Sex: Male
  Weight: 90.7194 kg

DRUGS (1)
  1. LISTERINE WHITENING PRE-BRUSH RINSE (NO ACTIVE INGREDIENT) [Suspect]
     Indication: DENTAL CARE
     Dosage: 3 TABLESPOONS, 1X A DAY, ORAL
     Route: 048
     Dates: start: 20080328

REACTIONS (4)
  - DRUG INEFFECTIVE [None]
  - MOUTH ULCERATION [None]
  - ORAL PAIN [None]
  - SELF-MEDICATION [None]
